FAERS Safety Report 12555232 (Version 2)
Quarter: 2016Q3

REPORT INFORMATION
  Report Type: Spontaneous
  Country: GB (occurrence: GB)
  Receive Date: 20160714
  Receipt Date: 20160727
  Transmission Date: 20161109
  Serious: Yes (Other)
  Sender: FDA-Public Use
  Company Number: GB-BAUSCH-BL-2016-015789

PATIENT
  Age: 68 Year
  Sex: Male

DRUGS (9)
  1. MICONAZOLE. [Interacting]
     Active Substance: MICONAZOLE
     Indication: ORAL DISORDER
     Route: 065
  2. METRONIDAZOLE. [Interacting]
     Active Substance: METRONIDAZOLE
     Indication: ORAL PAIN
  3. WARFARIN SODIUM. [Suspect]
     Active Substance: WARFARIN SODIUM
     Indication: ANTICOAGULANT THERAPY
     Route: 065
  4. VENTOLIN [Concomitant]
     Active Substance: ALBUTEROL SULFATE
     Indication: PRODUCT USED FOR UNKNOWN INDICATION
  5. METRONIDAZOLE. [Suspect]
     Active Substance: METRONIDAZOLE
     Indication: ORAL DISORDER
     Route: 065
  6. CANDESARTAN CILEXETIL. [Concomitant]
     Active Substance: CANDESARTAN CILEXETIL
     Indication: PRODUCT USED FOR UNKNOWN INDICATION
  7. LANSOPRAZOLE. [Concomitant]
     Active Substance: LANSOPRAZOLE
     Indication: PRODUCT USED FOR UNKNOWN INDICATION
  8. AMLODIPINE [Concomitant]
     Active Substance: AMLODIPINE BESYLATE
     Indication: PRODUCT USED FOR UNKNOWN INDICATION
  9. MICONAZOLE. [Interacting]
     Active Substance: MICONAZOLE
     Indication: ORAL PAIN

REACTIONS (1)
  - Contusion [Unknown]
